FAERS Safety Report 7297904-1 (Version None)
Quarter: 2011Q1

REPORT INFORMATION
  Report Type: 
  Country: None (occurrence: None)
  Receive Date: 20110217
  Receipt Date: 20101221
  Transmission Date: 20110831
  Serious: No
  Sender: FDA-Public Use
  Company Number: US-KINGPHARMUSA00001-K201001536

PATIENT
  Age: 62 Year
  Sex: Female
  Weight: 59.864 kg

DRUGS (6)
  1. FLECTOR [Suspect]
     Indication: ARTHRITIS
     Dosage: 1 PATCH, SINGLE
     Route: 061
     Dates: start: 20101210, end: 20101210
  2. VITAMIN D [Concomitant]
     Dosage: 50000 U, BIW
  3. XANAX [Concomitant]
     Indication: SLEEP DISORDER
  4. THYROID THERAPY [Concomitant]
  5. IBUPROFEN [Concomitant]
     Dosage: UNK
  6. PRILOSEC [Concomitant]
     Indication: DYSPEPSIA

REACTIONS (2)
  - PAIN [None]
  - APPLICATION SITE PAIN [None]
